FAERS Safety Report 8803375 (Version 2)
Quarter: 2015Q2

REPORT INFORMATION
  Report Type: Report from Study
  Country: US (occurrence: US)
  Receive Date: 20120924
  Receipt Date: 20150616
  Transmission Date: 20150821
  Serious: Yes (Death)
  Sender: FDA-Public Use
  Company Number: US-ROCHE-1095457

PATIENT
  Sex: Male

DRUGS (22)
  1. TOPOTECAN [Concomitant]
     Active Substance: TOPOTECAN\TOPOTECAN HYDROCHLORIDE
  2. ETOPOSIDE. [Concomitant]
     Active Substance: ETOPOSIDE
  3. ADVIL [Concomitant]
     Active Substance: IBUPROFEN
     Indication: PAIN
  4. ALOXI [Concomitant]
     Active Substance: PALONOSETRON HYDROCHLORIDE
     Route: 065
  5. NEUPOGEN [Concomitant]
     Active Substance: FILGRASTIM
     Route: 065
  6. ATIVAN [Concomitant]
     Active Substance: LORAZEPAM
     Route: 065
  7. AVASTIN [Suspect]
     Active Substance: BEVACIZUMAB
     Indication: LUNG NEOPLASM MALIGNANT
     Route: 042
     Dates: start: 20050630
  8. ARANESP [Concomitant]
     Active Substance: DARBEPOETIN ALFA
     Route: 065
  9. ARANESP [Concomitant]
     Active Substance: DARBEPOETIN ALFA
     Route: 065
  10. GEMZAR [Concomitant]
     Active Substance: GEMCITABINE HYDROCHLORIDE
     Route: 065
  11. DECADRON [Concomitant]
     Active Substance: DEXAMETHASONE
     Route: 065
  12. ARANESP [Concomitant]
     Active Substance: DARBEPOETIN ALFA
     Route: 065
  13. ACETAMINOPHEN. [Concomitant]
     Active Substance: ACETAMINOPHEN
  14. COUMADIN [Concomitant]
     Active Substance: WARFARIN SODIUM
     Route: 065
  15. TUSSIONEX PENNKINETIC [Concomitant]
     Active Substance: CHLORPHENIRAMINE\HYDROCODONE
     Dosage: 1 TEASPOON TWICE DAILY
     Route: 065
  16. PLATINOL [Concomitant]
     Active Substance: CISPLATIN
     Route: 065
  17. OXYCODONE [Concomitant]
     Active Substance: OXYCODONE
  18. AVASTIN [Suspect]
     Active Substance: BEVACIZUMAB
     Indication: TRACHEAL CANCER
     Route: 042
  19. HYDANTOIN [Concomitant]
  20. LASIX [Concomitant]
     Active Substance: FUROSEMIDE
     Route: 065
  21. PREDNISONE. [Concomitant]
     Active Substance: PREDNISONE
     Route: 048
     Dates: start: 20040630
  22. DURAGESIC [Concomitant]
     Active Substance: FENTANYL
     Dosage: PRIOR FOR 3 DAYS
     Route: 065

REACTIONS (5)
  - Gastrooesophageal reflux disease [Unknown]
  - Abdominal pain [Unknown]
  - Dyspepsia [Unknown]
  - Off label use [Unknown]
  - Death [Fatal]
